FAERS Safety Report 9169915 (Version 1)
Quarter: 2013Q1

REPORT INFORMATION
  Report Type: Spontaneous
  Country: US (occurrence: None)
  Receive Date: 20130307
  Receipt Date: 20130307
  Transmission Date: 20140127
  Serious: Yes (Hospitalization, Disabling, Other)
  Sender: FDA-Public Use
  Company Number: 2013AT000042

PATIENT
  Age: 51 Year
  Sex: Female
  Weight: 79.38 kg

DRUGS (8)
  1. ROBAXIN [Suspect]
  2. CELEBREX [Suspect]
     Dates: end: 2012
  3. ZITHROMAX [Suspect]
  4. DIAZEPAM [Suspect]
     Dosage: PRESENT
  5. HYDROMORPHONE [Suspect]
     Dosage: PRESENT
  6. UNSPECIFIED BACK PAIN MEDICATIONS [Suspect]
     Dates: start: 2012
  7. DEXLANSOPRAZOLE [Concomitant]
  8. HYLAN [Concomitant]

REACTIONS (5)
  - Intraductal proliferative breast lesion [None]
  - Back pain [None]
  - Temporomandibular joint syndrome [None]
  - Fibromyalgia [None]
  - Drug ineffective [None]
